FAERS Safety Report 4931425-3 (Version None)
Quarter: 2006Q1

REPORT INFORMATION
  Report Type: 
  Country: None (occurrence: None)
  Receive Date: 20060228
  Receipt Date: 20060217
  Transmission Date: 20060701
  Serious: Yes (Other)
  Sender: FDA-Public Use
  Company Number: 2006025287

PATIENT
  Age: 47 Year
  Sex: Female
  Weight: 135.6255 kg

DRUGS (8)
  1. LIPITOR [Suspect]
     Indication: BLOOD CHOLESTEROL INCREASED
     Dosage: 10 MG (10 MG, 1 IN 1 D)
     Dates: start: 20051001
  2. PREDNISONE TAB [Suspect]
     Indication: PNEUMONIA
  3. GLUCOPHAGE [Concomitant]
  4. PROTONIX [Concomitant]
  5. LASIX [Concomitant]
  6. ADVAIRD (FLUTICASONE PROPIONATE, SALMETEROL XINAFOATE) [Concomitant]
  7. ZYRTEC [Concomitant]
  8. VITAMIN D [Concomitant]

REACTIONS (5)
  - DIABETES MELLITUS [None]
  - GRANULOMA [None]
  - HEPATIC STEATOSIS [None]
  - HEPATITIS [None]
  - SINUSITIS [None]
